FAERS Safety Report 18976105 (Version 1)
Quarter: 2021Q1

REPORT INFORMATION
  Report Type: Report from Study
  Country: None (occurrence: US)
  Receive Date: 20210305
  Receipt Date: 20210305
  Transmission Date: 20210420
  Serious: Yes (Other)
  Sender: FDA-Public Use
  Company Number: US-ABBVIE-21K-163-3793517-00

PATIENT
  Age: 68 Year
  Sex: Female

DRUGS (1)
  1. HUMIRA [Suspect]
     Active Substance: ADALIMUMAB
     Indication: RHEUMATOID ARTHRITIS
     Route: 058
     Dates: start: 20201029, end: 20210101

REACTIONS (4)
  - Fatigue [Unknown]
  - Spinal operation [Unknown]
  - Sinusitis [Unknown]
  - Procedural pain [Unknown]

NARRATIVE: CASE EVENT DATE: 20210104
